FAERS Safety Report 20871772 (Version 1)
Quarter: 2022Q2

REPORT INFORMATION
  Report Type: Spontaneous
  Country: US (occurrence: US)
  Receive Date: 20220525
  Receipt Date: 20220525
  Transmission Date: 20220720
  Serious: No
  Sender: FDA-Public Use
  Company Number: US-BAUSCH-BL-2022-012139

PATIENT
  Age: 57 Year
  Sex: Female

DRUGS (1)
  1. JUBLIA [Suspect]
     Active Substance: EFINACONAZOLE
     Indication: Onychomycosis
     Dosage: JUBLIA ONE TOPICAL APPLICATION DAILY
     Route: 061
     Dates: start: 20220513

REACTIONS (4)
  - Product delivery mechanism issue [Unknown]
  - Device issue [Unknown]
  - Product design issue [Unknown]
  - Product use complaint [Unknown]

NARRATIVE: CASE EVENT DATE: 20220514
